FAERS Safety Report 8992734 (Version 1)
Quarter: 2013Q1

REPORT INFORMATION
  Report Type: Report from Study
  Country: CA (occurrence: CA)
  Receive Date: 20130102
  Receipt Date: 20130102
  Transmission Date: 20140127
  Serious: Yes (Other)
  Sender: FDA-Public Use
  Company Number: CA-ROCHE-1163552

PATIENT
  Age: 54 Year
  Sex: Female
  Weight: 83.9 kg

DRUGS (6)
  1. RITUXIMAB [Suspect]
     Indication: IDIOPATHIC THROMBOCYTOPENIC PURPURA
     Dosage: THERAPY INTERRUPTED FOR 30 MIN DUE TO INFUSION REACTION.
     Route: 042
     Dates: start: 20121126
  2. RITUXIMAB [Suspect]
     Dosage: THERAPY RESTARTED AFTER INFUSION REACTION WAS RESOLVED.
     Route: 042
  3. RITUXIMAB [Suspect]
     Dosage: THERAPY RESTARTED AFTER INFUSION REACTION WAS RESOLVED.
     Route: 042
  4. RITUXIMAB [Suspect]
     Dosage: THERAPY DISCONTINUED AFTER HEART SPASMS
     Route: 042
     Dates: end: 20121217
  5. NEXIUM [Concomitant]
  6. AZATHIOPRINE [Concomitant]
     Indication: IDIOPATHIC THROMBOCYTOPENIC PURPURA
     Route: 048
     Dates: start: 20121119

REACTIONS (11)
  - Cardiospasm [Not Recovered/Not Resolved]
  - Hypertension [Not Recovered/Not Resolved]
  - Chest discomfort [Recovered/Resolved]
  - Sinus arrhythmia [Recovering/Resolving]
  - Infusion related reaction [Recovered/Resolved]
  - Influenza like illness [Recovered/Resolved]
  - Platelet count decreased [Not Recovered/Not Resolved]
  - Contusion [Unknown]
  - Headache [Unknown]
  - Hepatic enzyme increased [Unknown]
  - Stress [Unknown]
